FAERS Safety Report 5816627-6 (Version None)
Quarter: 2008Q3

REPORT INFORMATION
  Report Type: 
  Country: None (occurrence: None)
  Receive Date: 20080721
  Receipt Date: 20080709
  Transmission Date: 20090109
  Serious: Yes (Death)
  Sender: FDA-Public Use
  Company Number: CN-ROCHE-575770

PATIENT
  Age: 9 Day
  Sex: Male

DRUGS (6)
  1. CEFTRIAXONE SODIUM [Suspect]
     Indication: HYPERBILIRUBINAEMIA NEONATAL
     Dosage: GIVEN WITH 20ML SODIUM CHLORIDE.
     Route: 065
  2. CHINESE MEDICINE NOS [Concomitant]
     Dosage: GIVEN DAILY WITH 20ML GLUCOSE.
     Route: 065
  3. VITAMIN B [Concomitant]
  4. ASCORBIC ACID [Concomitant]
  5. ATP [Concomitant]
  6. COENZYME NOS [Concomitant]
     Dosage: REPORTED AS COENZYME A, GIVEN WITH 10%GLUCOSE 60 ML.

REACTIONS (9)
  - COLD SWEAT [None]
  - CYANOSIS [None]
  - DYSPNOEA [None]
  - FONTANELLE DEPRESSED [None]
  - HYPOPNOEA [None]
  - PALLOR [None]
  - PYREXIA [None]
  - RESPIRATORY ARREST [None]
  - YELLOW SKIN [None]
